FAERS Safety Report 21159718 (Version 1)
Quarter: 2022Q3

REPORT INFORMATION
  Report Type: Spontaneous
  Country: US (occurrence: US)
  Receive Date: 20220802
  Receipt Date: 20220802
  Transmission Date: 20221026
  Serious: No
  Sender: FDA-Public Use
  Company Number: US-COSETTE-CP2022US000058

PATIENT
  Sex: Female

DRUGS (1)
  1. CLOMIPHENE CITRATE [Suspect]
     Active Substance: CLOMIPHENE CITRATE
     Indication: Infertility female
     Route: 048

REACTIONS (1)
  - Adverse drug reaction [Unknown]
